FAERS Safety Report 19292820 (Version 1)
Quarter: 2021Q2

REPORT INFORMATION
  Report Type: Spontaneous
  Country: US (occurrence: US)
  Receive Date: 20210521
  Receipt Date: 20210521
  Transmission Date: 20210717
  Serious: No
  Sender: FDA-Public Use
  Company Number: None

PATIENT
  Age: 21 Year
  Sex: Female
  Weight: 52.65 kg

DRUGS (1)
  1. INFLECTRA [Suspect]
     Active Substance: INFLIXIMAB-DYYB
     Route: 042
     Dates: start: 20210521, end: 20210521

REACTIONS (4)
  - Pruritus [None]
  - Paraesthesia oral [None]
  - Feeling hot [None]
  - Abdominal pain [None]

NARRATIVE: CASE EVENT DATE: 20210521
